FAERS Safety Report 6051025-4 (Version None)
Quarter: 2009Q1

REPORT INFORMATION
  Report Type: 
  Country: None (occurrence: None)
  Receive Date: 20090121
  Receipt Date: 20090108
  Transmission Date: 20090719
  Serious: Yes (Other)
  Sender: FDA-Public Use
  Company Number: 1000003518

PATIENT

DRUGS (1)
  1. CAMPRAL [Suspect]

REACTIONS (1)
  - DISEASE RECURRENCE [None]
